FAERS Safety Report 7466717-X (Version None)
Quarter: 2011Q2

REPORT INFORMATION
  Report Type: 
  Country: None (occurrence: None)
  Receive Date: 20110428
  Receipt Date: 20110322
  Transmission Date: 20111010
  Serious: Yes (Hospitalization, Other)
  Sender: FDA-Public Use
  Company Number: 530#6#2008-00028

PATIENT
  Sex: Male
  Weight: 92 kg

DRUGS (10)
  1. ACETYL SALICYLIC ACID USP BAT [Concomitant]
  2. NEUPRO [Suspect]
     Indication: PARKINSON'S DISEASE
     Dosage: (2 MG QD, DAILY DOSE:2 MILLIGRAM/24HOURS;UNIT DOSE:2 MILLIGRAM/24HOURS TRANSDERMAL), (4 MG QD, DAILY
     Route: 062
     Dates: start: 20070201, end: 20070207
  3. NEUPRO [Suspect]
     Indication: PARKINSON'S DISEASE
     Dosage: (2 MG QD, DAILY DOSE:2 MILLIGRAM/24HOURS;UNIT DOSE:2 MILLIGRAM/24HOURS TRANSDERMAL), (4 MG QD, DAILY
     Route: 062
     Dates: start: 20070208, end: 20070214
  4. NEUPRO [Suspect]
     Indication: PARKINSON'S DISEASE
     Dosage: (2 MG QD, DAILY DOSE:2 MILLIGRAM/24HOURS;UNIT DOSE:2 MILLIGRAM/24HOURS TRANSDERMAL), (4 MG QD, DAILY
     Route: 062
     Dates: start: 20070215, end: 20080101
  5. PARMIPEXOLE [Concomitant]
  6. GABAPENTIN [Concomitant]
  7. CABERGOLINE [Concomitant]
  8. ROPINIROLE [Concomitant]
  9. ACE INHIBITOR NOS [Concomitant]
  10. OMNIC [Concomitant]

REACTIONS (3)
  - LOSS OF CONSCIOUSNESS [None]
  - CARDIAC DISORDER [None]
  - CARDIOVASCULAR DISORDER [None]
